FAERS Safety Report 17814579 (Version 1)
Quarter: 2020Q2

REPORT INFORMATION
  Report Type: Report from Study
  Country: CN (occurrence: CN)
  Receive Date: 20200522
  Receipt Date: 20200522
  Transmission Date: 20200714
  Serious: Yes (Hospitalization)
  Sender: FDA-Public Use
  Company Number: CN-ROCHE-2597573

PATIENT
  Age: 55 Year
  Sex: Female
  Weight: 44 kg

DRUGS (22)
  1. RECOMBINANT HUMAN INTERLEUKIN-11 [Concomitant]
     Active Substance: OPRELVEKIN
     Route: 065
     Dates: start: 20131019, end: 20131020
  2. ESOMEPRAZOLE MAGNESIUM. [Concomitant]
     Active Substance: ESOMEPRAZOLE MAGNESIUM
     Route: 065
     Dates: start: 20131017, end: 20140127
  3. DIPHENHYDRAMINE. [Concomitant]
     Active Substance: DIPHENHYDRAMINE
     Route: 065
     Dates: start: 20131016, end: 20160121
  4. DIPHENHYDRAMINE. [Concomitant]
     Active Substance: DIPHENHYDRAMINE
     Indication: HYPOXIA
     Route: 065
     Dates: start: 20131016, end: 20131016
  5. DIAMMONIUM GLYCYRRHIZINATE [Concomitant]
     Active Substance: HERBALS\DIAMMONIUM GLYCYRRHIZINATE
     Route: 065
     Dates: start: 20131023, end: 20131023
  6. VINCRISTINE [Suspect]
     Active Substance: VINCRISTINE
     Indication: B-CELL LYMPHOMA
     Dosage: DATE OF MOST RECENT DOSE OF VINCRISTINE PRIOR TO AE ONSET 17/OCT/2013
     Route: 042
     Dates: start: 20131017
  7. TROPISETRON HYDROCHLORIDE [Concomitant]
     Active Substance: TROPISETRON HYDROCHLORIDE
     Route: 065
     Dates: start: 20131017, end: 20140127
  8. RECOMBINANT HUMAN GRANULOCYTE COLONY STIMULATING FACTOR [Concomitant]
     Active Substance: GRANULOCYTE COLONY-STIMULATING FACTOR NOS
     Route: 065
     Dates: start: 20131018, end: 20131020
  9. PREDNISONE. [Suspect]
     Active Substance: PREDNISONE
     Indication: B-CELL LYMPHOMA
     Dosage: DATE OF MOST RECENT DOSE OF PREDNISONE PRIOR TO AE ONSET 21/OCT/2013
     Route: 065
     Dates: start: 20131017
  10. SODIUM BICARBONATE. [Concomitant]
     Active Substance: SODIUM BICARBONATE
     Route: 065
     Dates: start: 20131015, end: 20131017
  11. CIMETIDINE [Concomitant]
     Active Substance: CIMETIDINE
     Indication: HYPOXIA
     Route: 065
     Dates: start: 20131016, end: 20131016
  12. RECOMBINANT HUMAN GRANULOCYTE COLONY STIMULATING FACTOR [Concomitant]
     Active Substance: GRANULOCYTE COLONY-STIMULATING FACTOR NOS
     Route: 065
     Dates: start: 20131025, end: 20131026
  13. THYMALFASIN [Concomitant]
     Active Substance: THYMALFASIN
     Route: 065
     Dates: start: 20131024, end: 20160121
  14. MUCOPOLYSACCHARIDE POLYSULFATE [Concomitant]
     Route: 065
     Dates: start: 20131026, end: 2013
  15. CELECOXIB. [Concomitant]
     Active Substance: CELECOXIB
     Indication: PYREXIA
     Route: 065
     Dates: start: 20131016, end: 20131016
  16. FUROSEMIDUM [FUROSEMIDE] [Concomitant]
     Active Substance: FUROSEMIDE
     Route: 065
     Dates: start: 20131015, end: 20131017
  17. DOXORUBICIN [Suspect]
     Active Substance: DOXORUBICIN
     Indication: B-CELL LYMPHOMA
     Dosage: DATE OF MOST RECENT DOSE OF DOXORUBICIN PRIOR TO AE ONSET 17/OCT/2013
     Route: 042
     Dates: start: 20131017
  18. CIMETIDINE [Concomitant]
     Active Substance: CIMETIDINE
     Route: 065
     Dates: start: 20131016, end: 20160121
  19. ALLOPURINOL. [Concomitant]
     Active Substance: ALLOPURINOL
     Route: 065
     Dates: start: 20131015, end: 20131017
  20. OBINUTUZUMAB. [Suspect]
     Active Substance: OBINUTUZUMAB
     Indication: B-CELL LYMPHOMA
     Dosage: 4 MG/ML?DATE OF MOST RECENT DOSE OF OBINUTUZUMAB PRIOR TO EVENT ONSET 23/OCT/2013
     Route: 042
     Dates: start: 20131016
  21. PARACETAMOL [Concomitant]
     Active Substance: ACETAMINOPHEN
     Route: 065
     Dates: start: 20131016, end: 20160121
  22. CYCLOPHOSPHAMIDE. [Suspect]
     Active Substance: CYCLOPHOSPHAMIDE
     Indication: B-CELL LYMPHOMA
     Dosage: DATE OF MOST RECENT DOSE OF CYCLOPHOSPHAMIDE PRIOR TO AE ONSET 17/OCT/2013
     Route: 042
     Dates: start: 20131017

REACTIONS (2)
  - Bone marrow failure [Recovered/Resolved]
  - Leukopenia [Recovered/Resolved]

NARRATIVE: CASE EVENT DATE: 20131025
